FAERS Safety Report 7310499 (Version 2)
Quarter: 2014Q3

REPORT INFORMATION
  Report Type: Spontaneous
  Country: US (occurrence: None)
  Receive Date: 20100217
  Receipt Date: 20140714
  Transmission Date: 20150326
  Serious: Yes (Other)
  Sender: FDA-Public Use
  Company Number: 2010S1000868

PATIENT
  Sex: Male
  Weight: 79.38 kg

DRUGS (4)
  1. PHOSPHO-SODA [Suspect]
     Active Substance: SODIUM PHOSPHATE, DIBASIC\SODIUM PHOSPHATE, MONOBASIC
     Indication: COLONOSCOPY
     Dosage: PO
     Route: 048
     Dates: start: 20060813, end: 20060814
  2. ASPIRIN (ACETYLSALICYLIC ACID) [Concomitant]
     Active Substance: ASPIRIN
  3. LEVOXYL (LEVOTHYROXINE SODIUM) [Concomitant]
  4. FENOFIBRATE (FENOFIBRATE) (FENOFIBRATE) [Concomitant]
     Active Substance: FENOFIBRATE

REACTIONS (3)
  - Rash pruritic [None]
  - Renal disorder [None]
  - Acarodermatitis [None]

NARRATIVE: CASE EVENT DATE: 20090817
